FAERS Safety Report 9689196 (Version 2)
Quarter: 2014Q2

REPORT INFORMATION
  Report Type: Spontaneous
  Country: US (occurrence: US)
  Receive Date: 20131114
  Receipt Date: 20140528
  Transmission Date: 20141212
  Serious: No
  Sender: FDA-Public Use
  Company Number: US-009507513-1311USA005838

PATIENT
  Age: 82 Year
  Sex: Female
  Weight: 65.31 kg

DRUGS (2)
  1. MIRALAX [Suspect]
     Indication: CONSTIPATION
     Dosage: 17 G, PRN
     Route: 048
     Dates: start: 201311
  2. MIRALAX [Suspect]
     Dosage: 17 G, PRN
     Route: 048
     Dates: start: 201401, end: 201401

REACTIONS (1)
  - Drug ineffective [Unknown]
